FAERS Safety Report 4873367-8 (Version None)
Quarter: 2006Q1

REPORT INFORMATION
  Report Type: 
  Country: None (occurrence: None)
  Receive Date: 20060104
  Receipt Date: 20051228
  Transmission Date: 20060701
  Serious: Yes (Death, Life-Threatening)
  Sender: FDA-Public Use
  Company Number: 2005-136274-NL

PATIENT
  Age: 81 Year
  Sex: Female

DRUGS (6)
  1. DANAPAROID SODIUM [Suspect]
     Indication: DISSEMINATED INTRAVASCULAR COAGULATION
     Dosage: 1250 ANTI_XA BID INTRAVENOUS DRIP
     Route: 041
     Dates: start: 20050812, end: 20050814
  2. PREDNISOLONE ACETATE OPHTHALMIC SUSPENSION/DROPS [Concomitant]
  3. DOPAMINE HCL [Concomitant]
  4. FUROSEMIDE [Concomitant]
  5. OMEPRAZOLE SODIUM [Concomitant]
  6. GLYCERYL [Concomitant]

REACTIONS (4)
  - ANAEMIA [None]
  - HYPOKALAEMIA [None]
  - PLATELET COUNT DECREASED [None]
  - SUBDURAL HAEMORRHAGE [None]
